FAERS Safety Report 9753050 (Version 1)
Quarter: 2013Q4

REPORT INFORMATION
  Report Type: Spontaneous
  Country: US (occurrence: US)
  Receive Date: 20131213
  Receipt Date: 20131213
  Transmission Date: 20140711
  Serious: No
  Sender: FDA-Public Use
  Company Number: US-GILEAD-2009-0026238

PATIENT
  Age: 50 Year
  Sex: Female

DRUGS (17)
  1. LETAIRIS [Suspect]
     Indication: PULMONARY ARTERIAL HYPERTENSION
     Route: 048
     Dates: start: 20091127
  2. AMPICILLIN [Concomitant]
  3. ABILIFY [Concomitant]
  4. LAMICTAL [Concomitant]
  5. TRAZODONE [Concomitant]
  6. SYNTHROID [Concomitant]
  7. SINGULAIR [Concomitant]
  8. PSEUDOEPHEDRINE [Concomitant]
  9. PROZAC [Concomitant]
  10. NEXIUM [Concomitant]
  11. MAGNESIUM [Concomitant]
  12. POTASSIUM [Concomitant]
  13. DEMADEX [Concomitant]
  14. COUMADIN [Concomitant]
  15. ASPIRIN [Concomitant]
  16. SPIRIVA [Concomitant]
  17. ADVAIR [Concomitant]

REACTIONS (2)
  - Epistaxis [Not Recovered/Not Resolved]
  - Nasal congestion [Not Recovered/Not Resolved]
